FAERS Safety Report 10149849 (Version 1)
Quarter: 2014Q2

REPORT INFORMATION
  Report Type: Spontaneous
  Country: US (occurrence: None)
  Receive Date: 20140501
  Receipt Date: 20140501
  Transmission Date: 20141212
  Serious: Yes (Other)
  Sender: FDA-Public Use
  Company Number: None

PATIENT
  Age: 64 Year
  Sex: Female
  Weight: 52.16 kg

DRUGS (23)
  1. ATORVASTATIN [Suspect]
     Indication: HYPERLIPIDAEMIA
     Dosage: 10MG  (TOOK ONE TAB) EVERY NIGHT AT BEDTIME BY MOUTH
     Route: 048
     Dates: start: 20140410, end: 20140411
  2. ATORVASTATIN [Suspect]
     Indication: BLOOD LACTATE DEHYDROGENASE INCREASED
     Dosage: 10MG  (TOOK ONE TAB) EVERY NIGHT AT BEDTIME BY MOUTH
     Route: 048
     Dates: start: 20140410, end: 20140411
  3. PULMICORT [Concomitant]
  4. WALPHED D MAXIMUM STRENGTH NON DROWSY SINUS [Concomitant]
  5. CYCLOBENZAPRINE [Concomitant]
  6. LISINOPRIL [Concomitant]
  7. AZELASTINE HCL [Concomitant]
  8. ZOLPIDEM [Concomitant]
  9. HYDROCODONE/APAP [Concomitant]
  10. DESOXIMETASONE [Concomitant]
  11. MUPIROCIN [Concomitant]
  12. GUAIFENESIN [Concomitant]
  13. MAXIVISION [Concomitant]
  14. MSM [Concomitant]
  15. FAMOTIDINE [Concomitant]
  16. VITAMIN D3 [Concomitant]
  17. MELATONIN [Concomitant]
  18. OASIS TEARS PLUS [Concomitant]
  19. DIPHENHYDRAMINE [Concomitant]
  20. SETIRIZINE [Concomitant]
  21. EPIPEN [Concomitant]
  22. REYCLAR [Concomitant]
  23. ALBUTEROL [Concomitant]

REACTIONS (18)
  - Pruritus [None]
  - Papule [None]
  - Muscle spasms [None]
  - Abdominal pain upper [None]
  - Swollen tongue [None]
  - Lip swelling [None]
  - Wheezing [None]
  - Muscle twitching [None]
  - Psychomotor hyperactivity [None]
  - Myalgia [None]
  - Muscular weakness [None]
  - Dysuria [None]
  - Painful defaecation [None]
  - Pain [None]
  - Vomiting [None]
  - Oedema peripheral [None]
  - Hepatic enzyme abnormal [None]
  - Renal failure [None]
